FAERS Safety Report 6076353-8 (Version None)
Quarter: 2009Q1

REPORT INFORMATION
  Report Type: 
  Country: None (occurrence: None)
  Receive Date: 20090209
  Receipt Date: 20090122
  Transmission Date: 20090719
  Serious: Yes (Hospitalization)
  Sender: FDA-Public Use
  Company Number: 2009S1001659

PATIENT
  Age: 17 Year
  Sex: Male

DRUGS (2)
  1. AMNESTEEM [Suspect]
     Indication: ACNE
     Dosage: 40 MG; DAILY; ORAL, 20 MG; DAILY; ORAL
     Route: 048
     Dates: end: 20090101
  2. AMNESTEEM [Suspect]
     Indication: ACNE
     Dosage: 40 MG; DAILY; ORAL, 20 MG; DAILY; ORAL
     Route: 048
     Dates: start: 20081231

REACTIONS (1)
  - TREATMENT NONCOMPLIANCE [None]
